FAERS Safety Report 14419076 (Version 9)
Quarter: 2018Q4

REPORT INFORMATION
  Report Type: Spontaneous
  Country: DE (occurrence: DE)
  Receive Date: 20180122
  Receipt Date: 20181214
  Transmission Date: 20190204
  Serious: Yes (Hospitalization, Other)
  Sender: FDA-Public Use
  Company Number: DE-BIOGEN-2018BI00512305

PATIENT
  Sex: Female

DRUGS (2)
  1. TYSABRI [Suspect]
     Active Substance: NATALIZUMAB
     Indication: MULTIPLE SCLEROSIS
     Dosage: INFUSED EVERY 1 HOUR
     Route: 042
     Dates: start: 20141015, end: 201606
  2. TYSABRI [Suspect]
     Active Substance: NATALIZUMAB
     Route: 065
     Dates: start: 20141111

REACTIONS (20)
  - Myopia [Unknown]
  - Acute disseminated encephalomyelitis [Unknown]
  - Jaundice [Unknown]
  - Cholestasis [Unknown]
  - Hirsutism [Unknown]
  - Amenorrhoea [Unknown]
  - Depression [Unknown]
  - Enterococcal infection [Unknown]
  - Amenorrhoea [Unknown]
  - Urinary tract infection [Unknown]
  - Central nervous system inflammation [Unknown]
  - Hemianopia homonymous [Unknown]
  - Initial insomnia [Unknown]
  - Somatic symptom disorder [Unknown]
  - Pruritus generalised [Unknown]
  - Dysphagia [Unknown]
  - Neurogenic bladder [Unknown]
  - Menstruation delayed [Unknown]
  - Encephalitis [Unknown]
  - Tympanic membrane disorder [Unknown]

NARRATIVE: CASE EVENT DATE: 201406
